FAERS Safety Report 4314016-7 (Version None)
Quarter: 2004Q1

REPORT INFORMATION
  Report Type: 
  Country: None (occurrence: None)
  Receive Date: 20040305
  Receipt Date: 20040225
  Transmission Date: 20041129
  Serious: Yes (Death, Other)
  Sender: FDA-Public Use
  Company Number: 2004-02-1335

PATIENT
  Age: 79 Year
  Sex: Male

DRUGS (8)
  1. MOXIFLOXACIN HCL [Suspect]
     Indication: RESPIRATORY TRACT INFECTION
     Dosage: 400 MG/QD
  2. THEOPHYLLINE [Suspect]
     Indication: CHRONIC OBSTRUCTIVE AIRWAYS DISEASE
     Dosage: 400 MG/D
  3. ALBUTEROL [Concomitant]
  4. FUROSEMIDE [Concomitant]
  5. POTASSIUM SUPPLEMENT (NOS) [Concomitant]
  6. WARFARIN SODIUM [Concomitant]
  7. DIGOXIN [Concomitant]
  8. OMEPRAZOLE [Concomitant]

REACTIONS (7)
  - ALKALOSIS [None]
  - GENERAL PHYSICAL HEALTH DETERIORATION [None]
  - HYPOKALAEMIA [None]
  - MULTI-ORGAN FAILURE [None]
  - RENAL FAILURE [None]
  - RESPIRATORY FAILURE [None]
  - STATUS EPILEPTICUS [None]
